FAERS Safety Report 13184818 (Version 1)
Quarter: 2017Q1

REPORT INFORMATION
  Report Type: Spontaneous
  Country: GB (occurrence: GB)
  Receive Date: 20170203
  Receipt Date: 20170203
  Transmission Date: 20170428
  Serious: Yes (Other)
  Sender: FDA-Public Use
  Company Number: GB-UCBSA-2017003473

PATIENT
  Age: 60 Year
  Sex: Female

DRUGS (3)
  1. KEPPRA [Suspect]
     Active Substance: LEVETIRACETAM
     Indication: EPILEPSY
     Dosage: 500 MG, 2X/DAY (BID)
  2. AVAMYS [Suspect]
     Active Substance: FLUTICASONE FUROATE
     Indication: PRODUCT USED FOR UNKNOWN INDICATION
     Dosage: UNK
     Route: 045
  3. VITAMIN D [Concomitant]
     Active Substance: CHOLECALCIFEROL
     Indication: OSTEOPOROSIS PROPHYLAXIS

REACTIONS (14)
  - Jaw disorder [Not Recovered/Not Resolved]
  - Nasal valve collapse [Not Recovered/Not Resolved]
  - Sinusitis [Not Recovered/Not Resolved]
  - Loose tooth [Not Recovered/Not Resolved]
  - Photopsia [Not Recovered/Not Resolved]
  - Vitreous detachment [Not Recovered/Not Resolved]
  - Gingival recession [Not Recovered/Not Resolved]
  - Gingivitis [Not Recovered/Not Resolved]
  - Rhinalgia [Not Recovered/Not Resolved]
  - Visual acuity reduced [Not Recovered/Not Resolved]
  - Dental caries [Not Recovered/Not Resolved]
  - Condition aggravated [Not Recovered/Not Resolved]
  - Facial pain [Not Recovered/Not Resolved]
  - Rhinitis [Not Recovered/Not Resolved]
